FAERS Safety Report 7229869-2 (Version None)
Quarter: 2011Q1

REPORT INFORMATION
  Report Type: 
  Country: None (occurrence: None)
  Receive Date: 20110117
  Receipt Date: 20110111
  Transmission Date: 20110831
  Serious: Yes (Disabling, Other)
  Sender: FDA-Public Use
  Company Number: US-PFIZER INC-US-WYE-H13096010

PATIENT
  Sex: Female
  Weight: 59 kg

DRUGS (5)
  1. HYZAAR [Concomitant]
  2. HYDROCHLOROTHIAZIDE [Concomitant]
  3. PREMPRO [Suspect]
     Indication: MENOPAUSAL SYMPTOMS
     Dosage: 0.45/1.5MG/DAILY
     Route: 048
     Dates: end: 20091118
  4. LOPRESSOR [Concomitant]
  5. LIPITOR [Suspect]
     Indication: BLOOD CHOLESTEROL INCREASED
     Dosage: 20 MG, 1X/DAY
     Route: 065
     Dates: end: 20100107

REACTIONS (5)
  - VISUAL IMPAIRMENT [None]
  - RETINAL VEIN OCCLUSION [None]
  - ESSENTIAL THROMBOCYTHAEMIA [None]
  - RETINAL VEIN THROMBOSIS [None]
  - CATARACT [None]
